FAERS Safety Report 7527638-7 (Version None)
Quarter: 2011Q2

REPORT INFORMATION
  Report Type: 
  Country: None (occurrence: None)
  Receive Date: 20110512
  Receipt Date: 20110308
  Transmission Date: 20111010
  Serious: No
  Sender: FDA-Public Use
  Company Number: 1000019171

PATIENT
  Age: 25 Year
  Sex: Female

DRUGS (2)
  1. SAVELLA [Suspect]
     Indication: FIBROMYALGIA
     Dosage: SEE IMAGE
     Route: 048
     Dates: start: 20110101, end: 20110101
  2. AMIRX (CYCLOBENZAPINE HCL) (CYCLOBENZAPRINE HCL) [Concomitant]

REACTIONS (1)
  - AMENORRHOEA [None]
